FAERS Safety Report 14238795 (Version 1)
Quarter: 2017Q4

REPORT INFORMATION
  Report Type: Spontaneous
  Country: US (occurrence: None)
  Receive Date: 20171129
  Receipt Date: 20171129
  Transmission Date: 20180321
  Serious: Yes (Hospitalization)
  Sender: FDA-Public Use
  Company Number: None

PATIENT
  Age: 60 Year
  Sex: Male
  Weight: 90.1 kg

DRUGS (1)
  1. INTRON A [Suspect]
     Active Substance: INTERFERON ALFA-2B
     Dates: end: 20171021

REACTIONS (7)
  - Necrotising fasciitis [None]
  - Tachypnoea [None]
  - Renal failure [None]
  - Acute kidney injury [None]
  - Rash [None]
  - Septic shock [None]
  - Skin necrosis [None]

NARRATIVE: CASE EVENT DATE: 20171120
